FAERS Safety Report 13647684 (Version 1)
Quarter: 2017Q2

REPORT INFORMATION
  Report Type: Spontaneous
  Country: US (occurrence: US)
  Receive Date: 20170613
  Receipt Date: 20170613
  Transmission Date: 20170830
  Serious: No
  Sender: FDA-Public Use
  Company Number: US-AMNEAL PHARMACEUTICALS-2017AMN00425

PATIENT
  Sex: Female
  Weight: 61.22 kg

DRUGS (1)
  1. ESTRADIOL. [Suspect]
     Active Substance: ESTRADIOL
     Indication: HORMONE REPLACEMENT THERAPY
     Dosage: UNK
     Dates: start: 20170329, end: 20170329

REACTIONS (4)
  - Feeling abnormal [Recovering/Resolving]
  - Vulvovaginal dryness [Recovering/Resolving]
  - Product substitution issue [Recovering/Resolving]
  - Dyspareunia [Recovering/Resolving]
